FAERS Safety Report 18962446 (Version 1)
Quarter: 2021Q1

REPORT INFORMATION
  Report Type: Other
  Country: NL (occurrence: NL)
  Receive Date: 20210303
  Receipt Date: 20210303
  Transmission Date: 20210420
  Serious: Yes (Hospitalization, Other)
  Sender: FDA-Public Use
  Company Number: NL-INNOGENIX, LLC-2107519

PATIENT
  Age: 31 Year
  Sex: Female

DRUGS (3)
  1. LABETALOL HYDROCHLORIDE. [Suspect]
     Active Substance: LABETALOL HYDROCHLORIDE
     Indication: HYPERTENSION
     Route: 042
  2. CELESTONE [Concomitant]
     Active Substance: BETAMETHASONE
     Route: 065
  3. MAGNESIUM SULFATE. [Concomitant]
     Active Substance: MAGNESIUM SULFATE
     Route: 065

REACTIONS (3)
  - Premature labour [Unknown]
  - Drug ineffective [Unknown]
  - Exposure during pregnancy [Unknown]
